FAERS Safety Report 9971292 (Version 1)
Quarter: 2014Q1

REPORT INFORMATION
  Report Type: Spontaneous
  Country: US (occurrence: None)
  Receive Date: 20140305
  Receipt Date: 20140305
  Transmission Date: 20141002
  Serious: Yes (Other)
  Sender: FDA-Public Use
  Company Number: None

PATIENT
  Age: 65 Year
  Sex: Male
  Weight: 86.18 kg

DRUGS (2)
  1. METRONIDAZOLE [Suspect]
     Indication: HAEMORRHOID OPERATION
     Dosage: 1 PILL TWICE DAILY TAKEN BY MOUTH
     Route: 048
     Dates: start: 20140213, end: 20140214
  2. METRONIDAZOLE [Suspect]
     Indication: PROPHYLAXIS
     Dosage: 1 PILL TWICE DAILY TAKEN BY MOUTH
     Route: 048
     Dates: start: 20140213, end: 20140214

REACTIONS (9)
  - Diarrhoea [None]
  - Nausea [None]
  - Headache [None]
  - Depression [None]
  - Frequent bowel movements [None]
  - Dehydration [None]
  - Dysstasia [None]
  - Asthenia [None]
  - Dizziness [None]
